FAERS Safety Report 10222329 (Version 1)
Quarter: 2014Q2

REPORT INFORMATION
  Report Type: Spontaneous
  Country: US (occurrence: US)
  Receive Date: 20140606
  Receipt Date: 20140606
  Transmission Date: 20141212
  Serious: Yes (Congenital Anomaly, Other)
  Sender: FDA-Public Use
  Company Number: US-PFIZER INC-2014152858

PATIENT
  Sex: Female

DRUGS (7)
  1. ZOLOFT [Suspect]
     Dosage: UNK
     Route: 064
     Dates: start: 20030421, end: 20040804
  2. ZOLOFT [Suspect]
     Dosage: UNK
     Route: 064
  3. SERTRALINE HCL [Suspect]
     Dosage: UNK
     Route: 064
     Dates: start: 20030421, end: 20040804
  4. SERTRALINE HCL [Suspect]
     Dosage: UNK
     Route: 064
  5. CLOMIPHENE CITRATE [Concomitant]
     Dosage: UNK
     Route: 064
  6. WELLBUTRIN [Concomitant]
     Dosage: UNK
     Route: 064
  7. PRENATAL VITAMINS [Concomitant]
     Dosage: UNK
     Route: 064

REACTIONS (10)
  - Maternal exposure during pregnancy [Unknown]
  - DiGeorge^s syndrome [Unknown]
  - Velo-cardio-facial syndrome [Unknown]
  - Coarctation of the aorta [Unknown]
  - Patent ductus arteriosus [Unknown]
  - Ventricular septal defect [Unknown]
  - Laryngomalacia [Unknown]
  - Interruption of aortic arch [Unknown]
  - Atrial septal defect [Unknown]
  - Bicuspid aortic valve [Unknown]
